FAERS Safety Report 9228514 (Version 1)
Quarter: 2013Q1

REPORT INFORMATION
  Report Type: Spontaneous
  Country: US (occurrence: None)
  Receive Date: 20121016
  Receipt Date: 20121016
  Transmission Date: 20140127
  Serious: Yes (Other)
  Sender: FDA-Public Use
  Company Number: GAM-057-12-US

PATIENT
  Sex: Male

DRUGS (1)
  1. OCTAGAM [Suspect]
     Route: 042

REACTIONS (1)
  - Fatigue [None]
